FAERS Safety Report 14458650 (Version 2)
Quarter: 2018Q1

REPORT INFORMATION
  Report Type: Other
  Country: IT (occurrence: IT)
  Receive Date: 20180130
  Receipt Date: 20180309
  Transmission Date: 20180509
  Serious: Yes (Disabling)
  Sender: FDA-Public Use
  Company Number: IT-CELLTRION INC.-2018IT017542

PATIENT

DRUGS (4)
  1. REMSIMA [Suspect]
     Active Substance: INFLIXIMAB
     Dosage: 300 UG, 1 CYCLE
     Route: 065
     Dates: start: 20180101, end: 20180101
  2. INDOXEN [Concomitant]
     Active Substance: INDOMETHACIN
     Dosage: 25 MG
     Route: 065
  3. REMSIMA [Suspect]
     Active Substance: INFLIXIMAB
     Indication: RHEUMATOID ARTHRITIS
     Dosage: 300 UG, 1 CYCLE
     Route: 065
     Dates: start: 20170101, end: 20170101
  4. REUMAFLEX                          /00113802/ [Concomitant]
     Active Substance: METHOTREXATE SODIUM
     Dosage: 10 MG (50 MG/ML INJECTABLE SOLUTION, PREFILLED SYRINGES, 4 SYRINGES OF 0.20 ML WITH SUBCUTANEOUS FIX

REACTIONS (2)
  - Incorrect dose administered [Unknown]
  - Therapy non-responder [Not Recovered/Not Resolved]

NARRATIVE: CASE EVENT DATE: 20171001
